FAERS Safety Report 9927998 (Version 1)
Quarter: 2014Q1

REPORT INFORMATION
  Report Type: Spontaneous
  Country: US (occurrence: None)
  Receive Date: 20140226
  Receipt Date: 20140226
  Transmission Date: 20141002
  Serious: Yes (Other)
  Sender: FDA-Public Use
  Company Number: None

PATIENT
  Age: 33 Year
  Sex: Male
  Weight: 111.13 kg

DRUGS (1)
  1. AMBIEN 10MG [Suspect]
     Indication: INSOMNIA
     Dosage: 1 PILL AS NEEDED TAKEN BY MOUTH
     Route: 048
     Dates: start: 20100216, end: 20140224

REACTIONS (5)
  - Feeling abnormal [None]
  - Abnormal dreams [None]
  - Abnormal sleep-related event [None]
  - Middle insomnia [None]
  - Sleep disorder [None]
